FAERS Safety Report 4517313-5 (Version None)
Quarter: 2004Q4

REPORT INFORMATION
  Report Type: 
  Country: None (occurrence: None)
  Receive Date: 20041008
  Receipt Date: 20040622
  Transmission Date: 20050328
  Serious: No
  Sender: FDA-Public Use
  Company Number: 2004S1000141

PATIENT
  Age: 59 Year
  Sex: Male
  Weight: 106.8 kg

DRUGS (10)
  1. CUBICIN [Suspect]
     Indication: DIABETIC FOOT
     Dosage: 400 MG; Q24H; IV
     Route: 042
     Dates: start: 20040601
  2. CUBICIN [Suspect]
     Indication: STAPHYLOCOCCAL INFECTION
     Dosage: 400 MG; Q24H; IV
     Route: 042
     Dates: start: 20040601
  3. VASOTEC [Concomitant]
  4. NPH INSULIN [Concomitant]
  5. GLUCOPHAGE [Concomitant]
  6. GLUCOTROL [Concomitant]
  7. CYTOMEL [Concomitant]
  8. NEURONTIN [Concomitant]
  9. AMITRIPTYLINE HCL [Concomitant]
  10. RESTORIL [Concomitant]

REACTIONS (3)
  - HYPOGLYCAEMIA [None]
  - INSOMNIA [None]
  - MALAISE [None]
